FAERS Safety Report 15049323 (Version 1)
Quarter: 2018Q2

REPORT INFORMATION
  Report Type: Spontaneous
  Country: ER (occurrence: ER)
  Receive Date: 20180622
  Receipt Date: 20180622
  Transmission Date: 20180711
  Serious: Yes (Disabling)
  Sender: FDA-Public Use
  Company Number: ER-ENDO PHARMACEUTICALS INC-2018-039768

PATIENT
  Age: 50 Year
  Sex: Female
  Weight: 75 kg

DRUGS (3)
  1. HYDROCHLOROTHIAZIDE TABLETS 25 MG [Suspect]
     Active Substance: HYDROCHLOROTHIAZIDE
     Dosage: 25 MG, TID
     Route: 065
     Dates: start: 201306
  2. ENALAPRIL [Concomitant]
     Active Substance: ENALAPRIL
     Indication: HYPERTENSION
     Dosage: 20 MG, BID
     Route: 065
     Dates: start: 20130610
  3. HYDROCHLOROTHIAZIDE TABLETS 25 MG [Suspect]
     Active Substance: HYDROCHLOROTHIAZIDE
     Indication: HYPERTENSION
     Dosage: 25 MG, 5 TIMES A DAY
     Route: 065
     Dates: start: 20130610

REACTIONS (2)
  - Accidental overdose [Unknown]
  - Deafness [Not Recovered/Not Resolved]

NARRATIVE: CASE EVENT DATE: 20130612
